FAERS Safety Report 8907300 (Version 1)
Quarter: 2012Q4

REPORT INFORMATION
  Report Type: 
  Country: US (occurrence: US)
  Receive Date: 20121114
  Receipt Date: 20121114
  Transmission Date: 20130627
  Serious: Yes (Hospitalization)
  Sender: FDA-Public Use
  Company Number: US-UCBSA-070772

PATIENT
  Age: 49 Year
  Sex: Male

DRUGS (9)
  1. ZAROXOLYN [Suspect]
     Dates: start: 20120620, end: 20120628
  2. SAXAGLIPTIN [Suspect]
     Indication: TYPE 2 DIABETES MELLITUS
     Dates: start: 20100911
  3. NOVOLOG [Suspect]
     Indication: TYPE 2 DIABETES MELLITUS
     Dosage: 10 IU/UNITS; DOSE: 1DF
     Dates: start: 2012, end: 20120715
  4. NOVOLOG [Suspect]
     Indication: TYPE 2 DIABETES MELLITUS
     Dates: end: 20120528
  5. LANTUS [Suspect]
     Indication: TYPE 2 DIABETES MELLITUS
     Dosage: DOSE: 1DF; 20IU/UNITS
     Dates: start: 20120529, end: 20120615
  6. LASIX [Suspect]
  7. ASPIRIN [Concomitant]
  8. PRADAXA [Concomitant]
     Dates: start: 20120530, end: 20120628
  9. AMIODARONE [Concomitant]
     Dates: start: 20120605, end: 20120629

REACTIONS (1)
  - Renal failure acute [Recovered/Resolved]
